FAERS Safety Report 23219853 (Version 2)
Quarter: 2024Q2

REPORT INFORMATION
  Report Type: Spontaneous
  Country: US (occurrence: US)
  Receive Date: 20231122
  Receipt Date: 20240604
  Transmission Date: 20240716
  Serious: Yes (Other)
  Sender: FDA-Public Use
  Company Number: US-AVADEL CNS PHARMACEUTICALS, LLC-2023AVA00146

PATIENT
  Age: 20 Year
  Sex: Male
  Weight: 46.259 kg

DRUGS (3)
  1. LUMRYZ [Suspect]
     Active Substance: SODIUM OXYBATE
     Indication: Narcolepsy
     Dosage: 9 G, 1X/DAY NIGHTLY
     Route: 048
     Dates: start: 20230906, end: 20230909
  2. LUMRYZ [Suspect]
     Active Substance: SODIUM OXYBATE
     Indication: Cataplexy
  3. MODAFINIL [Concomitant]
     Active Substance: MODAFINIL
     Dosage: 200 MG, 1X/DAY EVERY MORNING

REACTIONS (23)
  - Delirium [Recovered/Resolved]
  - Mania [Not Recovered/Not Resolved]
  - Automatism [Not Recovered/Not Resolved]
  - Reading disorder [Not Recovered/Not Resolved]
  - Feeling abnormal [Not Recovered/Not Resolved]
  - Gastrooesophageal reflux disease [Unknown]
  - Mental impairment [Not Recovered/Not Resolved]
  - Cognitive disorder [Not Recovered/Not Resolved]
  - Swelling face [Unknown]
  - Insomnia [Not Recovered/Not Resolved]
  - Hypophagia [Recovered/Resolved]
  - Motor dysfunction [Unknown]
  - Aversion [Recovered/Resolved]
  - Confusional state [Not Recovered/Not Resolved]
  - Panic attack [Recovered/Resolved]
  - Vomiting [Not Recovered/Not Resolved]
  - Dizziness [Unknown]
  - Headache [Unknown]
  - Nausea [Not Recovered/Not Resolved]
  - Anxiety [Not Recovered/Not Resolved]
  - Extra dose administered [Recovered/Resolved]
  - Drug dose titration not performed [Recovered/Resolved]
  - Product use complaint [Recovered/Resolved]

NARRATIVE: CASE EVENT DATE: 20230901
